FAERS Safety Report 7100592-8 (Version None)
Quarter: 2010Q4

REPORT INFORMATION
  Report Type: 
  Country: None (occurrence: None)
  Receive Date: 20101113
  Receipt Date: 20100219
  Transmission Date: 20110411
  Serious: Yes (Other)
  Sender: FDA-Public Use
  Company Number: US-ALLERGAN-1002233US

PATIENT
  Sex: Female

DRUGS (5)
  1. BOTOXA? [Suspect]
     Indication: TORTICOLLIS
     Dosage: UNK
     Route: 030
     Dates: start: 20100101, end: 20100101
  2. SYNTHROID [Concomitant]
  3. LANTUS [Concomitant]
  4. APIDRA [Concomitant]
  5. LISINOPRIL [Concomitant]

REACTIONS (4)
  - INJECTION SITE SWELLING [None]
  - MUSCULAR WEAKNESS [None]
  - NECK PAIN [None]
  - VISION BLURRED [None]
